FAERS Safety Report 9255143 (Version 1)
Quarter: 2013Q2

REPORT INFORMATION
  Report Type: Spontaneous
  Country: IT (occurrence: IT)
  Receive Date: 20130425
  Receipt Date: 20130425
  Transmission Date: 20140414
  Serious: Yes (Other)
  Sender: FDA-Public Use
  Company Number: IT-ASTRAZENECA-2013SE25843

PATIENT
  Age: 59 Year
  Sex: Female

DRUGS (6)
  1. QUETIAPINE [Suspect]
     Indication: BIPOLAR II DISORDER
     Route: 048
  2. QUETIAPINE [Suspect]
     Indication: INSOMNIA
     Route: 048
  3. QUETIAPINE [Suspect]
     Indication: BIPOLAR II DISORDER
     Route: 048
  4. QUETIAPINE [Suspect]
     Indication: INSOMNIA
     Route: 048
  5. QUETIAPINE [Suspect]
     Indication: BIPOLAR II DISORDER
     Route: 048
  6. QUETIAPINE [Suspect]
     Indication: INSOMNIA
     Route: 048

REACTIONS (4)
  - Face injury [Recovered/Resolved]
  - Joint injury [Recovered/Resolved]
  - Akathisia [Recovered/Resolved]
  - Somnambulism [Recovered/Resolved]
